FAERS Safety Report 7506422-4 (Version None)
Quarter: 2011Q2

REPORT INFORMATION
  Report Type: 
  Country: None (occurrence: None)
  Receive Date: 20110519
  Receipt Date: 20110504
  Transmission Date: 20111010
  Serious: Yes (Other)
  Sender: FDA-Public Use
  Company Number: AUR-APU-2011-01556

PATIENT
  Age: 64 Year
  Sex: Male

DRUGS (6)
  1. LISINOPRIL (5MG OD) [Concomitant]
  2. TOPROL-XL [Concomitant]
  3. FENOFIBRATE [Concomitant]
  4. SIMVASTATIN [Concomitant]
  5. METOPROLOL SUCCINATE [Suspect]
     Indication: DRUG THERAPY
     Dosage: 50MG-BID-
     Dates: start: 20110101, end: 20110101
  6. VITAMIN TAB [Concomitant]

REACTIONS (2)
  - URINARY TRACT PAIN [None]
  - PROSTATIC SPECIFIC ANTIGEN INCREASED [None]
